FAERS Safety Report 7931902-7 (Version None)
Quarter: 2011Q4

REPORT INFORMATION
  Report Type: 
  Country: None (occurrence: None)
  Receive Date: 20111121
  Receipt Date: 20111114
  Transmission Date: 20120403
  Serious: Yes (Death)
  Sender: FDA-Public Use
  Company Number: MUTUAL PHARMACEUTICAL COMPANY, INC.-CLCY20110153

PATIENT
  Age: 80 Year
  Sex: Female

DRUGS (3)
  1. UNSPECIFIED MEDICATIONS [Concomitant]
     Indication: PRODUCT USED FOR UNKNOWN INDICATION
     Route: 065
  2. COLCRYS [Suspect]
     Indication: GOUT
     Route: 065
  3. COLCRYS [Suspect]
     Route: 065
     Dates: start: 20111024, end: 20111001

REACTIONS (5)
  - DEATH [None]
  - HEPATIC ENZYME INCREASED [None]
  - DIARRHOEA [None]
  - HYPOTENSION [None]
  - WEIGHT DECREASED [None]
